FAERS Safety Report 24922146 (Version 1)
Quarter: 2025Q1

REPORT INFORMATION
  Report Type: Spontaneous
  Country: CN (occurrence: CN)
  Receive Date: 20250204
  Receipt Date: 20250204
  Transmission Date: 20250408
  Serious: Yes (Death, Other)
  Sender: EPIC PHARM
  Company Number: CN-EPICPHARMA-CN-2025EPCLIT00076

PATIENT
  Age: 60 Year
  Sex: Male

DRUGS (19)
  1. CARBOPLATIN [Suspect]
     Active Substance: CARBOPLATIN
     Indication: Small cell lung cancer
     Route: 042
     Dates: start: 202203
  2. CARBOPLATIN [Suspect]
     Active Substance: CARBOPLATIN
     Indication: Paraneoplastic syndrome
     Route: 042
     Dates: start: 202303
  3. CARBOPLATIN [Suspect]
     Active Substance: CARBOPLATIN
     Route: 042
     Dates: start: 202303
  4. IRINOTECAN HYDROCHLORIDE [Suspect]
     Active Substance: IRINOTECAN HYDROCHLORIDE
     Indication: Small cell lung cancer
     Route: 042
     Dates: start: 2023
  5. IRINOTECAN HYDROCHLORIDE [Suspect]
     Active Substance: IRINOTECAN HYDROCHLORIDE
     Indication: Paraneoplastic syndrome
  6. ETOPOSIDE [Suspect]
     Active Substance: ETOPOSIDE
     Indication: Small cell lung cancer
     Route: 048
     Dates: start: 202303
  7. ETOPOSIDE [Suspect]
     Active Substance: ETOPOSIDE
     Indication: Paraneoplastic syndrome
     Route: 048
     Dates: start: 202310
  8. DURVALUMAB [Suspect]
     Active Substance: DURVALUMAB
     Indication: Small cell lung cancer
     Route: 042
     Dates: start: 202303
  9. DURVALUMAB [Suspect]
     Active Substance: DURVALUMAB
     Indication: Paraneoplastic syndrome
     Route: 042
     Dates: start: 202310
  10. CISPLATIN [Suspect]
     Active Substance: CISPLATIN
     Indication: Small cell lung cancer
     Route: 042
     Dates: start: 202301
  11. CISPLATIN [Suspect]
     Active Substance: CISPLATIN
     Indication: Paraneoplastic syndrome
     Route: 042
     Dates: start: 202302
  12. CISPLATIN [Suspect]
     Active Substance: CISPLATIN
     Route: 042
     Dates: start: 202305
  13. SERPLULIMAB [Suspect]
     Active Substance: SERPLULIMAB
     Indication: Small cell lung cancer
     Route: 042
     Dates: start: 2023
  14. SERPLULIMAB [Suspect]
     Active Substance: SERPLULIMAB
     Indication: Cushing^s syndrome
     Route: 042
     Dates: start: 202303
  15. SERPLULIMAB [Suspect]
     Active Substance: SERPLULIMAB
     Route: 042
     Dates: start: 202303
  16. BEVACIZUMAB [Suspect]
     Active Substance: BEVACIZUMAB
     Indication: Small cell lung cancer
     Route: 065
  17. BEVACIZUMAB [Suspect]
     Active Substance: BEVACIZUMAB
     Indication: Cushing^s syndrome
  18. TRILACICLIB [Concomitant]
     Active Substance: TRILACICLIB
     Indication: Myelosuppression
     Route: 065
  19. CATEQUENTINIB [Concomitant]
     Active Substance: CATEQUENTINIB
     Indication: Pleural effusion
     Route: 048

REACTIONS (5)
  - Respiratory disorder [Fatal]
  - Cardiac failure chronic [Fatal]
  - Myelosuppression [Fatal]
  - Pyrexia [Unknown]
  - Product use in unapproved indication [Unknown]
